FAERS Safety Report 4550886-5 (Version None)
Quarter: 2004Q4

REPORT INFORMATION
  Report Type: 
  Country: None (occurrence: None)
  Receive Date: 20041217
  Receipt Date: 20040909
  Transmission Date: 20050328
  Serious: No
  Sender: FDA-Public Use
  Company Number: 2004-BP-08205BP

PATIENT
  Age: 73 Year
  Sex: Female

DRUGS (11)
  1. SPIRIVA [Suspect]
     Indication: CHRONIC OBSTRUCTIVE AIRWAYS DISEASE
     Dosage: 18 MCG (18 MCG, 1 ONCE DAILY), IH
     Route: 055
  2. SPIRIVA [Suspect]
     Indication: RESPIRATORY DISORDER
     Dosage: 18 MCG (18 MCG, 1 ONCE DAILY), IH
     Route: 055
  3. SPIRIVA [Suspect]
  4. ALBUTEROL [Concomitant]
  5. LIPITOR [Concomitant]
  6. SYNTHROID [Concomitant]
  7. FUROSEMIDE [Concomitant]
  8. VITAMINS (VITAMINS) [Concomitant]
  9. ADVAIR (SERETIDE MITE) [Concomitant]
  10. FOSAMAX [Concomitant]
  11. RHINOCORT [Concomitant]

REACTIONS (1)
  - DYSPNOEA EXACERBATED [None]
